FAERS Safety Report 7299746-X (Version None)
Quarter: 2011Q1

REPORT INFORMATION
  Report Type: 
  Country: None (occurrence: None)
  Receive Date: 20110217
  Receipt Date: 20110211
  Transmission Date: 20110831
  Serious: Yes (Other)
  Sender: FDA-Public Use
  Company Number: US-US-EMD SERONO, INC.-7034005

PATIENT
  Sex: Female
  Weight: 68 kg

DRUGS (12)
  1. ZOLOFT [Concomitant]
  2. VITAMIN D [Concomitant]
  3. VIVELLE DOT PATCH [Concomitant]
  4. ASPIRIN [Concomitant]
  5. LIPITOR [Concomitant]
  6. NAPROXEN [Concomitant]
  7. PROVIGIL [Concomitant]
  8. REBIF [Suspect]
     Indication: MULTIPLE SCLEROSIS
     Route: 058
     Dates: start: 20050101, end: 20101230
  9. CALCIUM [Concomitant]
  10. PROPRANOLOL [Concomitant]
  11. AVALIDE [Concomitant]
  12. BACLOFEN [Concomitant]

REACTIONS (2)
  - INJECTION SITE NECROSIS [None]
  - INJECTION SITE HAEMATOMA [None]
